FAERS Safety Report 10172464 (Version 1)
Quarter: 2014Q2

REPORT INFORMATION
  Report Type: Report from Study
  Country: DE (occurrence: AT)
  Receive Date: 20140515
  Receipt Date: 20140515
  Transmission Date: 20141212
  Serious: Yes (Other)
  Sender: FDA-Public Use
  Company Number: DE-BAYER-2014-071143

PATIENT
  Sex: Female

DRUGS (15)
  1. REGORAFENIB [Suspect]
     Indication: COLORECTAL CANCER METASTATIC
     Dosage: UNK
     Dates: start: 20140408, end: 20140507
  2. CIPROXIN [Concomitant]
  3. CLAVAMOX [Concomitant]
  4. CO-ENAC [Concomitant]
  5. DICLOFENAC [Concomitant]
  6. DUROGESIC [Concomitant]
  7. FENTANYL [Concomitant]
  8. FRAGMIN [Concomitant]
  9. MEXALEN [Concomitant]
  10. MOLAXOLE [Concomitant]
  11. MOTILIUM [Concomitant]
  12. NOVALGIN [Concomitant]
  13. PANTOPRAZOLE [Concomitant]
  14. UNASYN [Concomitant]
  15. CYMBALTA [Concomitant]

REACTIONS (3)
  - Renal failure [Recovered/Resolved]
  - Vertigo [Recovered/Resolved]
  - Fatigue [Not Recovered/Not Resolved]
